FAERS Safety Report 5097425-0 (Version None)
Quarter: 2006Q3

REPORT INFORMATION
  Report Type: 
  Country: None (occurrence: None)
  Receive Date: 20060901
  Receipt Date: 20060815
  Transmission Date: 20061208
  Serious: Yes (Hospitalization, Other)
  Sender: FDA-Public Use
  Company Number: US200608003818

PATIENT
  Sex: Female
  Weight: 81.6 kg

DRUGS (7)
  1. ZYPREXA [Suspect]
     Dates: start: 20001001, end: 20050501
  2. RISPERIDONE [Concomitant]
  3. TRIFLUOPERAZONE (TRIFLUOPERAZINE) [Concomitant]
  4. NEURONTIN [Concomitant]
  5. BUPROPION HCL [Concomitant]
  6. METOPROLOL TARTRATE [Concomitant]
  7. HYDROCHLORZIDE (HYDROCHLOROTHIAZIDE) [Concomitant]

REACTIONS (6)
  - BLOOD CHOLESTEROL ABNORMAL [None]
  - BLOOD TRIGLYCERIDES INCREASED [None]
  - DIABETES MELLITUS [None]
  - METABOLIC DISORDER [None]
  - MYOCARDIAL INFARCTION [None]
  - MYOCARDIAL ISCHAEMIA [None]
